FAERS Safety Report 11468890 (Version 1)
Quarter: 2015Q3

REPORT INFORMATION
  Report Type: Spontaneous
  Country: US (occurrence: None)
  Receive Date: 20150828
  Receipt Date: 20150828
  Transmission Date: 20151125
  Serious: Yes (Hospitalization)
  Sender: FDA-Public Use
  Company Number: AMAG2012500006

PATIENT
  Age: 71 Year
  Sex: Male

DRUGS (16)
  1. GLIMEPRIDE [Concomitant]
     Active Substance: GLIMEPIRIDE
  2. LEVOTHYROXINE (LEVOTHYROXINE SODIUM) [Concomitant]
  3. POTASSIUM CHLORIDE. [Concomitant]
     Active Substance: POTASSIUM CHLORIDE
  4. METOLAZONE. [Concomitant]
     Active Substance: METOLAZONE
  5. AMIODARONE (AMIODARONE HYDROCHLORIDE) [Concomitant]
  6. PROTONIX [Concomitant]
     Active Substance: PANTOPRAZOLE SODIUM
  7. FERAHEME [Suspect]
     Active Substance: FERUMOXYTOL NON-STOICHIOMETRIC MAGNETITE
     Indication: IRON DEFICIENCY ANAEMIA
     Dosage: IV PUSH
     Dates: start: 20141230, end: 20141230
  8. LIVALO (PITAVASTATIN CALCIUM) [Concomitant]
  9. SPIRONOLACTONE. [Concomitant]
     Active Substance: SPIRONOLACTONE
  10. VALSARTAN. [Concomitant]
     Active Substance: VALSARTAN
  11. COQ-10 (UBIDECARENONE) [Concomitant]
  12. LASIX [Concomitant]
     Active Substance: FUROSEMIDE
  13. COUMADIN (COUMARIN) [Concomitant]
  14. WELCHOL (COLESEVELAM HYDROCHLORIDE) [Concomitant]
  15. CARVEDILOL (CARVEDILOL) [Concomitant]
     Active Substance: CARVEDILOL
  16. ZETIA [Concomitant]
     Active Substance: EZETIMIBE

REACTIONS (1)
  - Unresponsive to stimuli [None]

NARRATIVE: CASE EVENT DATE: 20141230
